FAERS Safety Report 9129997 (Version 2)
Quarter: 2013Q1

REPORT INFORMATION
  Report Type: Report from Study
  Country: US (occurrence: US)
  Receive Date: 20130125
  Receipt Date: 20130311
  Transmission Date: 20140127
  Serious: Yes (Death, Life-Threatening, Hospitalization, Other)
  Sender: FDA-Public Use
  Company Number: US-ASTELLAS-2013US000994

PATIENT
  Age: 62 Year
  Sex: Female
  Weight: 37 kg

DRUGS (2)
  1. ERLOTINIB TABLET [Suspect]
     Indication: ADENOCARCINOMA
     Dosage: 150 MG, UID/QD
     Route: 065
     Dates: start: 20110127, end: 20130106
  2. BEVACIZUMAB [Suspect]
     Indication: ADENOCARCINOMA
     Dosage: UNK
     Route: 065
     Dates: end: 20110825

REACTIONS (7)
  - Convulsion [Unknown]
  - Coronary artery occlusion [Unknown]
  - Torsade de pointes [Unknown]
  - Blood potassium abnormal [Unknown]
  - Cerebrovascular accident [Unknown]
  - Cardiac failure [Fatal]
  - Ventricular arrhythmia [Fatal]
